FAERS Safety Report 6130009-1 (Version None)
Quarter: 2009Q1

REPORT INFORMATION
  Report Type: 
  Country: None (occurrence: None)
  Receive Date: 20090323
  Receipt Date: 20090323
  Transmission Date: 20090719
  Serious: Yes (Hospitalization)
  Sender: FDA-Public Use
  Company Number: None

PATIENT
  Age: 49 Year
  Sex: Male
  Weight: 63.5036 kg

DRUGS (2)
  1. RISPERIDONE [Suspect]
     Indication: PSYCHOTIC DISORDER
     Dosage: 2 MG TWICE DAILY PO
     Route: 048
  2. TRAZODONE HCL [Suspect]
     Indication: INSOMNIA
     Dosage: 300 MG DAILY AT BEDTIME PO
     Route: 048

REACTIONS (6)
  - DRUG INEFFECTIVE [None]
  - HAEMATOCRIT DECREASED [None]
  - HAEMOGLOBIN DECREASED [None]
  - LOW DENSITY LIPOPROTEIN INCREASED [None]
  - PRIAPISM [None]
  - RED BLOOD CELL COUNT DECREASED [None]
